FAERS Safety Report 9619486 (Version 4)
Quarter: 2014Q3

REPORT INFORMATION
  Report Type: Spontaneous
  Country: US (occurrence: US)
  Receive Date: 20131014
  Receipt Date: 20140703
  Transmission Date: 20150326
  Serious: Yes (Other)
  Sender: FDA-Public Use
  Company Number: US-TEVA-437581USA

PATIENT
  Age: 51 Year
  Sex: Female
  Weight: 61.74 kg

DRUGS (1)
  1. PARAGARD T380A [Suspect]
     Active Substance: COPPER
     Indication: CONTRACEPTION
     Route: 015
     Dates: start: 20080512, end: 20131007

REACTIONS (2)
  - Medical device complication [Recovered/Resolved]
  - Embedded device [Recovering/Resolving]

NARRATIVE: CASE EVENT DATE: 20131007
